FAERS Safety Report 10505083 (Version 4)
Quarter: 2017Q4

REPORT INFORMATION
  Report Type: Spontaneous
  Country: US (occurrence: US)
  Receive Date: 20141008
  Receipt Date: 20171002
  Transmission Date: 20180320
  Serious: Yes (Hospitalization)
  Sender: FDA-Public Use
  Company Number: US-OTSUKA-US-2014-13114

PATIENT
  Sex: Male

DRUGS (5)
  1. ABILIFY MAINTENA [Suspect]
     Active Substance: ARIPIPRAZOLE
     Dosage: UNK, QM
     Route: 030
     Dates: start: 20140618
  2. INVEGA SUSTENNA [Concomitant]
     Active Substance: PALIPERIDONE PALMITATE
     Dosage: UNK
     Route: 065
     Dates: start: 20140730
  3. ABILIFY MAINTENA [Suspect]
     Active Substance: ARIPIPRAZOLE
     Dosage: UNK, QM
     Route: 030
     Dates: start: 20140716
  4. INVEGA SUSTENNA [Concomitant]
     Active Substance: PALIPERIDONE PALMITATE
     Indication: PRODUCT USED FOR UNKNOWN INDICATION
     Dosage: UNK
     Route: 065
     Dates: end: 2014
  5. ABILIFY MAINTENA [Suspect]
     Active Substance: ARIPIPRAZOLE
     Indication: PRODUCT USED FOR UNKNOWN INDICATION
     Dosage: UNK, QM
     Route: 030
     Dates: start: 20140521

REACTIONS (6)
  - Psychiatric decompensation [Unknown]
  - Insomnia [Unknown]
  - Mood altered [Unknown]
  - Thinking abnormal [Unknown]
  - Drug level below therapeutic [Unknown]
  - Hallucination [Unknown]

NARRATIVE: CASE EVENT DATE: 20140710
